FAERS Safety Report 21664217 (Version 1)
Quarter: 2022Q4

REPORT INFORMATION
  Report Type: Spontaneous
  Country: US (occurrence: US)
  Receive Date: 20221130
  Receipt Date: 20221130
  Transmission Date: 20230113
  Serious: No
  Sender: FDA-Public Use
  Company Number: US-BIOGEN-2022BI01165615

PATIENT
  Age: 42 Year
  Sex: Female

DRUGS (9)
  1. VUMERITY [Suspect]
     Active Substance: DIROXIMEL FUMARATE
     Indication: Multiple sclerosis
     Route: 050
     Dates: start: 20220905
  2. VUMERITY [Suspect]
     Active Substance: DIROXIMEL FUMARATE
     Route: 050
     Dates: start: 20210820, end: 20211105
  3. VUMERITY [Suspect]
     Active Substance: DIROXIMEL FUMARATE
     Route: 050
  4. VUMERITY [Suspect]
     Active Substance: DIROXIMEL FUMARATE
     Route: 050
     Dates: start: 20211105
  5. GABADONE [Concomitant]
     Route: 050
  6. BACLOFEN [Concomitant]
     Active Substance: BACLOFEN
     Route: 050
  7. MELOXICAM [Concomitant]
     Active Substance: MELOXICAM
     Route: 050
  8. METFORMIN HYDROCHLORIDE [Concomitant]
     Active Substance: METFORMIN HYDROCHLORIDE
     Route: 050
  9. OZEMPIC [Concomitant]
     Active Substance: SEMAGLUTIDE
     Route: 050

REACTIONS (3)
  - Product dose omission issue [Unknown]
  - Multiple sclerosis relapse [Unknown]
  - Abdominal pain upper [Unknown]

NARRATIVE: CASE EVENT DATE: 20221001
